FAERS Safety Report 7762883-7 (Version None)
Quarter: 2011Q3

REPORT INFORMATION
  Report Type: 
  Country: None (occurrence: None)
  Receive Date: 20110920
  Receipt Date: 20110912
  Transmission Date: 20111222
  Serious: Yes (Other)
  Sender: FDA-Public Use
  Company Number: US-B.I. PHARMACEUTICALS,INC./RIDGEFIELD-2011-BP-22082BP

PATIENT
  Sex: Female

DRUGS (5)
  1. PRADAXA [Suspect]
     Indication: ATRIAL FIBRILLATION
     Dosage: 300 MG
     Route: 048
     Dates: start: 20110720
  2. METOPROLOL TARTRATE [Concomitant]
     Indication: ATRIAL FIBRILLATION
     Dates: start: 20110720
  3. HYDROCHLOROTHIAZIDE [Concomitant]
     Indication: HYPERTENSION
  4. LOSARTAN POTASSIUM [Concomitant]
     Indication: HYPERTENSION
  5. ESTRADIOL [Concomitant]
     Dates: start: 19960101

REACTIONS (6)
  - PAIN IN JAW [None]
  - NASOPHARYNGITIS [None]
  - HEART RATE INCREASED [None]
  - ATRIAL FIBRILLATION [None]
  - THROAT TIGHTNESS [None]
  - HEADACHE [None]
